FAERS Safety Report 8927956 (Version 1)
Quarter: 2012Q4

REPORT INFORMATION
  Report Type: Spontaneous
  Country: US (occurrence: None)
  Receive Date: 20121119
  Receipt Date: 20121119
  Transmission Date: 20130627
  Serious: Yes (Disabling, Other)
  Sender: FDA-Public Use
  Company Number: ADR-2012-02092

PATIENT
  Age: 16 Year
  Sex: Female

DRUGS (1)
  1. LIORESAL [Suspect]
     Indication: SPASTICITY
     Dosage: 200.0 MCG/DAY

REACTIONS (3)
  - Device dislocation [None]
  - Device dislocation [None]
  - Hypokinesia [None]
